FAERS Safety Report 5352268-5 (Version None)
Quarter: 2007Q2

REPORT INFORMATION
  Report Type: 
  Country: None (occurrence: None)
  Receive Date: 20070607
  Receipt Date: 20070529
  Transmission Date: 20071010
  Serious: Yes (Hospitalization, Other)
  Sender: FDA-Public Use
  Company Number: 163-20785-07021221

PATIENT
  Age: 72 Year
  Sex: Male

DRUGS (40)
  1. THALOMID [Suspect]
     Indication: MULTIPLE MYELOMA
     Dosage: SEE IMAGE
     Route: 048
     Dates: start: 20061007, end: 20061017
  2. THALOMID [Suspect]
     Indication: MULTIPLE MYELOMA
     Dosage: SEE IMAGE
     Route: 048
     Dates: start: 20061028, end: 20061107
  3. THALOMID [Suspect]
     Indication: MULTIPLE MYELOMA
     Dosage: SEE IMAGE
     Route: 048
     Dates: start: 20061124, end: 20070121
  4. DEXAMETHASONE TAB [Suspect]
     Indication: MULTIPLE MYELOMA
     Dosage: 20 MG, QD X 4 DAYS EVERY 21 DAYS, ORAL
     Route: 048
     Dates: start: 20061007, end: 20061017
  5. VELCADE [Suspect]
     Indication: MULTIPLE MYELOMA
     Dosage: SEE IMAGE
     Route: 042
     Dates: start: 20060726, end: 20060726
  6. VELCADE [Suspect]
     Indication: MULTIPLE MYELOMA
     Dosage: SEE IMAGE
     Route: 042
     Dates: start: 20060729, end: 20060729
  7. VELCADE [Suspect]
     Indication: MULTIPLE MYELOMA
     Dosage: SEE IMAGE
     Route: 042
     Dates: start: 20060802, end: 20060802
  8. VELCADE [Suspect]
     Indication: MULTIPLE MYELOMA
     Dosage: SEE IMAGE
     Route: 042
     Dates: start: 20060805, end: 20060805
  9. MELPHALAN (MELPHALAN) [Suspect]
     Indication: MULTIPLE MYELOMA
     Dosage: 250 MG, SINGLE DOSE, INTRAVENOUS
     Route: 042
     Dates: start: 20060906, end: 20060906
  10. CISPLATIN [Suspect]
     Indication: MULTIPLE MYELOMA
  11. ADRIAMYCIN PFS [Suspect]
     Indication: MULTIPLE MYELOMA
  12. CYCLOPHOSPHAMIDE [Suspect]
     Indication: MULTIPLE MYELOMA
  13. ETOPOSIDE [Suspect]
     Indication: MULTIPLE MYELOMA
  14. DOXYCYCLINE HYCLATE (DOXYCYCLINE HYCLATE) [Concomitant]
  15. LEVAQUIN [Concomitant]
  16. ZYPREXA [Concomitant]
  17. CALCIUM +D (CALCITE D) (TABLETS) [Concomitant]
  18. ZANTAC (RANITIDINE HYDROCHLORIDE) (CAPSULES) [Concomitant]
  19. OXYCODONE (OXYCODONE) (TABLETS) [Concomitant]
  20. RESTORIL (TEMAZEPAM) (TABLETS) [Concomitant]
  21. ACYCLOVIR (ACICLOVIR) (TABLETS) [Concomitant]
  22. MAGNESIUM OXIDE (MAGNESIUM OXIDE) (TABLETS) [Concomitant]
  23. ALPRAZOLAM (ALPRAZOLAM) (TABLETS) [Concomitant]
  24. PEXEVA (PAROXETINE MESILATE) (TABLETS) [Concomitant]
  25. COREG [Concomitant]
  26. LORAZEPAM (LORAZEPAM) (TABLETS) [Concomitant]
  27. CARAFATE (SUCRALFATE) (TABLETS) [Concomitant]
  28. PENTAMIDINE ISETHIONATE [Concomitant]
  29. POTASSIUM BICARBONATE (POTASSIUM BICARBONATE) [Concomitant]
  30. REGLAN / BENADRYL (METOCLOPRAMIDE HYDROCHLORIDE) (METOCLOPRAMIDE HYDRO [Concomitant]
  31. MAXIPIME [Concomitant]
  32. FOLIC ACID [Concomitant]
  33. MULTIVTAMINS (MULTIVITAMINS) [Concomitant]
  34. NORVASC [Concomitant]
  35. ALDACTONE [Concomitant]
  36. LEVAQUIN [Concomitant]
  37. FENTANYL (FENTANYL) (POULTICE OR PATCH) [Concomitant]
  38. FLUCONAZOLE (FLUCONAZOLE) (200 MILLIGRAM, TABLTS) [Concomitant]
  39. DILAUDID [Concomitant]
  40. PHYTONADIONE [Concomitant]

REACTIONS (18)
  - AGITATION [None]
  - BRAIN NATRIURETIC PEPTIDE INCREASED [None]
  - C-REACTIVE PROTEIN DECREASED [None]
  - CARDIAC FAILURE CONGESTIVE [None]
  - CHEST X-RAY ABNORMAL [None]
  - COLITIS [None]
  - CONFUSIONAL STATE [None]
  - CYTOMEGALOVIRUS INFECTION [None]
  - DEEP VEIN THROMBOSIS [None]
  - FLUID OVERLOAD [None]
  - MENTAL STATUS CHANGES [None]
  - NAUSEA [None]
  - PANCYTOPENIA [None]
  - PLEURAL EFFUSION [None]
  - PNEUMONIA [None]
  - RENAL FAILURE ACUTE [None]
  - RESPIRATORY DISORDER [None]
  - SYSTEMIC CANDIDA [None]
